FAERS Safety Report 10517111 (Version 8)
Quarter: 2016Q3

REPORT INFORMATION
  Report Type: Spontaneous
  Country: AU (occurrence: AU)
  Receive Date: 20141014
  Receipt Date: 20160928
  Transmission Date: 20161109
  Serious: Yes (Life-Threatening, Hospitalization, Other)
  Sender: FDA-Public Use
  Company Number: AU-ABBVIE-14P-008-1259583-00

PATIENT
  Age: 67 Year
  Sex: Male
  Weight: 85 kg

DRUGS (9)
  1. EFFEXOR [Concomitant]
     Active Substance: VENLAFAXINE HYDROCHLORIDE
     Indication: DEPRESSION
     Route: 048
  2. ONBREZ BREEZHALER [Concomitant]
     Active Substance: INDACATEROL
     Indication: PRODUCT USED FOR UNKNOWN INDICATION
  3. HUMIRA [Suspect]
     Active Substance: ADALIMUMAB
     Route: 058
     Dates: start: 201505
  4. DEPTRAN [Concomitant]
     Active Substance: DOXEPIN HYDROCHLORIDE
     Indication: DEPRESSION
     Route: 048
  5. SPIRIVA [Concomitant]
     Active Substance: TIOTROPIUM BROMIDE MONOHYDRATE
     Indication: PRODUCT USED FOR UNKNOWN INDICATION
  6. HUMIRA [Suspect]
     Active Substance: ADALIMUMAB
     Route: 058
     Dates: start: 2011, end: 201412
  7. CADUET [Concomitant]
     Active Substance: AMLODIPINE BESYLATE\ATORVASTATIN CALCIUM
     Indication: HYPERLIPIDAEMIA
  8. HUMIRA [Suspect]
     Active Substance: ADALIMUMAB
     Indication: PSORIASIS
     Route: 058
     Dates: start: 20090910
  9. CADUET [Concomitant]
     Active Substance: AMLODIPINE BESYLATE\ATORVASTATIN CALCIUM
     Indication: HYPERTENSION
     Dosage: 10/40
     Route: 048
     Dates: start: 2011

REACTIONS (14)
  - Pneumonia [Unknown]
  - Blood glucose increased [Unknown]
  - Aspartate aminotransferase increased [Unknown]
  - Injection site pain [Unknown]
  - Pyelonephritis [Recovered/Resolved]
  - Gamma-glutamyltransferase increased [Unknown]
  - Blood cholesterol decreased [Recovered/Resolved]
  - Blood triglycerides increased [Unknown]
  - Alanine aminotransferase increased [Unknown]
  - Renal impairment [Not Recovered/Not Resolved]
  - Renal impairment [Unknown]
  - Nephrolithiasis [Recovered/Resolved]
  - Glomerular filtration rate decreased [Unknown]
  - Osteoarthritis [Not Recovered/Not Resolved]

NARRATIVE: CASE EVENT DATE: 20090929
